FAERS Safety Report 23069996 (Version 3)
Quarter: 2023Q4

REPORT INFORMATION
  Report Type: Spontaneous
  Country: CA (occurrence: CA)
  Receive Date: 20231016
  Receipt Date: 20231026
  Transmission Date: 20240110
  Serious: Yes (Other)
  Sender: FDA-Public Use
  Company Number: CA-PFIZER INC-202300321646

PATIENT
  Age: 34 Year
  Sex: Female
  Weight: 92 kg

DRUGS (2)
  1. RUXIENCE [Suspect]
     Active Substance: RITUXIMAB-PVVR
     Indication: Rheumatoid arthritis
     Dosage: 1000 MG,ON DAY 1 ( DAY 1 AND DAY 15)
     Route: 042
     Dates: start: 20231005
  2. RUXIENCE [Suspect]
     Active Substance: RITUXIMAB-PVVR
     Dosage: 1000 MG,ON DAY 1 ( DAY 1 AND DAY 15)
     Route: 042
     Dates: start: 20231020

REACTIONS (3)
  - Pruritus [Recovered/Resolved]
  - Chills [Recovered/Resolved]
  - Erythema [Recovered/Resolved]

NARRATIVE: CASE EVENT DATE: 20231005
